FAERS Safety Report 22255469 (Version 1)
Quarter: 2023Q2

REPORT INFORMATION
  Report Type: Spontaneous
  Country: CN (occurrence: CN)
  Receive Date: 20230426
  Receipt Date: 20230426
  Transmission Date: 20230722
  Serious: Yes (Hospitalization)
  Sender: FDA-Public Use
  Company Number: CN-PFIZER INC-PV202300074532

PATIENT
  Age: 93 Year
  Sex: Male
  Weight: 54.1 kg

DRUGS (2)
  1. TYGACIL [Suspect]
     Active Substance: TIGECYCLINE
     Indication: Peritonitis
     Dosage: 100 MG, 2X/DAY
     Route: 041
     Dates: start: 20230410, end: 202304
  2. TYGACIL [Suspect]
     Active Substance: TIGECYCLINE
     Dosage: 50 MG, 2X/DAY
     Route: 041
     Dates: start: 202304, end: 20230417

REACTIONS (1)
  - Coagulopathy [Unknown]

NARRATIVE: CASE EVENT DATE: 20230417
